FAERS Safety Report 6852792-X (Version None)
Quarter: 2010Q3

REPORT INFORMATION
  Report Type: 
  Country: None (occurrence: None)
  Receive Date: 20100717
  Receipt Date: 20071126
  Transmission Date: 20110219
  Serious: No
  Sender: FDA-Public Use
  Company Number: US-PFIZER INC-2007100566

PATIENT
  Sex: Female
  Weight: 63.6 kg

DRUGS (5)
  1. CHANTIX [Suspect]
     Indication: SMOKING CESSATION THERAPY
     Dates: start: 20071117
  2. TOPAMAX [Concomitant]
     Indication: BIPOLAR DISORDER
  3. ABILIFY [Concomitant]
     Indication: BIPOLAR DISORDER
  4. KLONOPIN [Concomitant]
     Indication: BIPOLAR DISORDER
  5. LEXAPRO [Concomitant]
     Indication: BIPOLAR DISORDER

REACTIONS (1)
  - SOMNOLENCE [None]
